FAERS Safety Report 17806277 (Version 9)
Quarter: 2021Q3

REPORT INFORMATION
  Report Type: Report from Study
  Country: US (occurrence: US)
  Receive Date: 20200520
  Receipt Date: 20210713
  Transmission Date: 20211014
  Serious: Yes (Other)
  Sender: FDA-Public Use
  Company Number: NVSC2020US133919

PATIENT
  Age: 19 Year
  Sex: Female
  Weight: 79.4 kg

DRUGS (8)
  1. VITAMIN D [Concomitant]
     Active Substance: VITAMIN D NOS
     Indication: PRODUCT USED FOR UNKNOWN INDICATION
     Dosage: UNK
     Route: 065
  2. GILENYA [Suspect]
     Active Substance: FINGOLIMOD HYDROCHLORIDE
     Dosage: 0.5 MG, QD
     Route: 048
  3. GILENYA [Suspect]
     Active Substance: FINGOLIMOD HYDROCHLORIDE
     Indication: MULTIPLE SCLEROSIS
     Dosage: 0.5 MG
     Route: 048
     Dates: start: 20200329, end: 20200504
  4. GILENYA [Suspect]
     Active Substance: FINGOLIMOD HYDROCHLORIDE
     Indication: RELAPSING-REMITTING MULTIPLE SCLEROSIS
     Dosage: 0.5 MG, QD
     Route: 048
     Dates: start: 20190102
  5. CLARITIN [Concomitant]
     Active Substance: LORATADINE
     Indication: PRODUCT USED FOR UNKNOWN INDICATION
     Dosage: 10 MG, QD
     Route: 048
  6. TERRAMYCIN [Concomitant]
     Active Substance: OXYTETRACYCLINE\OXYTETRACYCLINE HYDROCHLORIDE
     Indication: PRODUCT USED FOR UNKNOWN INDICATION
     Dosage: UNK, QD (EXTERNAL SOLUTION)
     Route: 061
  7. GILENYA [Suspect]
     Active Substance: FINGOLIMOD HYDROCHLORIDE
     Dosage: 0.5 MG, QD
     Route: 048
  8. ZADITOR [Concomitant]
     Active Substance: KETOTIFEN FUMARATE
     Indication: PRODUCT USED FOR UNKNOWN INDICATION
     Dosage: 1 DRP TO EYE (SOLUTION)
     Route: 047

REACTIONS (26)
  - Blister [Unknown]
  - Balance disorder [Unknown]
  - Memory impairment [Unknown]
  - Pain [Unknown]
  - Normal newborn [Unknown]
  - Affect lability [Unknown]
  - Bladder pain [Unknown]
  - Multiple sclerosis relapse [Unknown]
  - Central nervous system lesion [Unknown]
  - Headache [Unknown]
  - Asthenia [Unknown]
  - Migraine [Recovering/Resolving]
  - Drug hypersensitivity [Unknown]
  - Maternal exposure during pregnancy [Unknown]
  - Muscle spasms [Recovering/Resolving]
  - Hypoaesthesia [Unknown]
  - Disturbance in attention [Unknown]
  - Depression [Unknown]
  - Fatigue [Unknown]
  - Vision blurred [Unknown]
  - Haemorrhage [Unknown]
  - Skin burning sensation [Unknown]
  - Muscle spasticity [Recovering/Resolving]
  - Muscle twitching [Unknown]
  - Gait disturbance [Unknown]
  - Fall [Unknown]

NARRATIVE: CASE EVENT DATE: 20200514
